FAERS Safety Report 16221652 (Version 3)
Quarter: 2020Q1

REPORT INFORMATION
  Report Type: Spontaneous
  Country: CA (occurrence: CA)
  Receive Date: 20190422
  Receipt Date: 20200219
  Transmission Date: 20200409
  Serious: Yes (Disabling)
  Sender: FDA-Public Use
  Company Number: CA-TEVA-2019-CA-1039522

PATIENT
  Age: 63 Year
  Sex: Female
  Weight: 45 kg

DRUGS (11)
  1. CIPROFLOXACIN HYDROCHLORIDE. [Suspect]
     Active Substance: CIPROFLOXACIN HYDROCHLORIDE
     Indication: DIVERTICULITIS
     Dosage: 1000 MILLIGRAM DAILY;
     Route: 048
  2. FOLIC ACID/PYRIDOXINE HYDROCHLORIDE/VITAMIN B12 [Concomitant]
  3. PARIET [Concomitant]
     Active Substance: RABEPRAZOLE SODIUM
  4. VITAMIN D [Concomitant]
     Active Substance: VITAMIN D NOS
  5. AVELOX [Suspect]
     Active Substance: MOXIFLOXACIN HYDROCHLORIDE
     Indication: DIVERTICULITIS
     Route: 048
  6. FOLIC ACID. [Concomitant]
     Active Substance: FOLIC ACID
  7. VITAMIN B COMPLEX [Concomitant]
     Active Substance: CYANOCOBALAMIN\DEXPANTHENOL\NIACINAMIDE\PYRIDOXINE HYDROCHLORIDE\RIBOFLAVIN 5^-PHOSPHATE SODIUM\THIAMINE HYDROCHLORIDE\VITAMIN B COMPLEX
  8. ATIVAN [Concomitant]
     Active Substance: LORAZEPAM
  9. ACETAMINOPHEN. [Concomitant]
     Active Substance: ACETAMINOPHEN
  10. MOXIFLOXACIN. [Suspect]
     Active Substance: MOXIFLOXACIN
     Indication: DIVERTICULITIS
     Route: 048
  11. FLAGYL [Concomitant]
     Active Substance: METRONIDAZOLE\METRONIDAZOLE HYDROCHLORIDE

REACTIONS (31)
  - Asthenia [Recovering/Resolving]
  - Blepharospasm [Recovering/Resolving]
  - Dysgeusia [Recovering/Resolving]
  - Nausea [Recovering/Resolving]
  - Bladder pain [Recovering/Resolving]
  - Central pain syndrome [Recovering/Resolving]
  - Contusion [Recovering/Resolving]
  - Fibromyalgia [Recovering/Resolving]
  - Lymphadenopathy [Recovering/Resolving]
  - Pain in extremity [Recovering/Resolving]
  - Drug intolerance [Recovering/Resolving]
  - Muscular weakness [Recovering/Resolving]
  - Nervous system disorder [Recovering/Resolving]
  - Paraesthesia [Recovering/Resolving]
  - Rash [Recovering/Resolving]
  - Tinnitus [Recovering/Resolving]
  - Depression [Recovering/Resolving]
  - Diarrhoea [Recovering/Resolving]
  - Abdominal pain [Recovering/Resolving]
  - Joint swelling [Recovering/Resolving]
  - Mouth ulceration [Recovering/Resolving]
  - Renal impairment [Recovering/Resolving]
  - Temporomandibular joint syndrome [Recovering/Resolving]
  - Anxiety [Recovering/Resolving]
  - Headache [Recovering/Resolving]
  - Neck pain [Recovering/Resolving]
  - Skin discolouration [Recovering/Resolving]
  - Arthralgia [Recovering/Resolving]
  - Decreased appetite [Recovering/Resolving]
  - Facial pain [Recovering/Resolving]
  - Peripheral swelling [Recovering/Resolving]
